FAERS Safety Report 5753895-3 (Version None)
Quarter: 2008Q2

REPORT INFORMATION
  Report Type: 
  Country: None (occurrence: None)
  Receive Date: 20080527
  Receipt Date: 20080527
  Transmission Date: 20081010
  Serious: Yes (Other)
  Sender: FDA-Public Use
  Company Number: None

PATIENT
  Age: 56 Year
  Sex: Female
  Weight: 87.9978 kg

DRUGS (2)
  1. CLOBETASOL PROPIONATE [Suspect]
     Indication: RASH PAPULAR
     Dosage: TWICE DAILY  1 MONTH RECTAL THEN ONCE DAILY 1 MONTH VAG
     Route: 054
     Dates: start: 20080504, end: 20080511
  2. CLOBETASOL PROPIONATE [Suspect]
     Indication: SKIN ATROPHY
     Dosage: TWICE DAILY  1 MONTH RECTAL THEN ONCE DAILY 1 MONTH VAG
     Route: 054
     Dates: start: 20080504, end: 20080511

REACTIONS (7)
  - BLISTER [None]
  - ECONOMIC PROBLEM [None]
  - EMOTIONAL DISTRESS [None]
  - ERYTHEMA [None]
  - IRRITABILITY [None]
  - PRURITUS [None]
  - RASH [None]
